FAERS Safety Report 10019923 (Version 1)
Quarter: 2014Q1

REPORT INFORMATION
  Report Type: Spontaneous
  Country: US (occurrence: US)
  Receive Date: 20140318
  Receipt Date: 20140318
  Transmission Date: 20141002
  Serious: No
  Sender: FDA-Public Use
  Company Number: US-GALDERMA-US14000695

PATIENT
  Age: 66 Year
  Sex: Female

DRUGS (10)
  1. MIRVASO (BRIMONIDINE) TOPICAL GEL, 0.33% [Suspect]
     Indication: ROSACEA
     Dosage: 0.33%
     Route: 061
     Dates: start: 201402
  2. SINGULAIR (MONTELUKAST) [Concomitant]
     Indication: ASTHMA
     Route: 048
     Dates: start: 2011
  3. ATIVAN (LORAZEPAM) [Concomitant]
     Indication: ANXIETY
     Route: 048
     Dates: start: 2004
  4. SYNTHROID (LEVOTHYROXINE SODIUM) [Concomitant]
     Indication: HYPOTHYROIDISM
     Route: 048
  5. ATENOLOL (TENORMIN) [Concomitant]
     Indication: HYPERTENSION
     Route: 048
  6. CLONIDINE (CATAPRES) [Concomitant]
     Indication: HYPERTENSION
     Route: 048
  7. SUBUTEX (BUPRENORPHINE) [Concomitant]
     Indication: ARTHRALGIA
     Dosage: 2 MG
     Route: 048
  8. METRONIDAZOLE CREAM (METRONIDAZOLE) 0.75% [Concomitant]
     Indication: ROSACEA
     Dosage: 0.75%
     Route: 061
  9. DOVE SENSITIVE SKIN CREAM [Concomitant]
     Route: 061
  10. ALLERGY SHOTS [Concomitant]
     Indication: IMMUNE TOLERANCE INDUCTION

REACTIONS (4)
  - Erythema [Not Recovered/Not Resolved]
  - Skin burning sensation [Not Recovered/Not Resolved]
  - Pain of skin [Not Recovered/Not Resolved]
  - Off label use [Not Recovered/Not Resolved]
